FAERS Safety Report 5914147-1 (Version None)
Quarter: 2008Q3

REPORT INFORMATION
  Report Type: 
  Country: None (occurrence: None)
  Receive Date: 20080909
  Receipt Date: 20080115
  Transmission Date: 20090109
  Serious: Yes (Hospitalization)
  Sender: FDA-Public Use
  Company Number: 163-20785-08010914

PATIENT
  Age: 58 Year
  Sex: Female
  Weight: 63.9 kg

DRUGS (17)
  1. THALOMID [Suspect]
     Indication: MULTIPLE MYELOMA
     Dosage: 200 MG, DAILY, ORAL; 100 MG, DAILY, ORAL
     Route: 048
     Dates: end: 20071120
  2. THALOMID [Suspect]
     Indication: MULTIPLE MYELOMA
     Dosage: 200 MG, DAILY, ORAL; 100 MG, DAILY, ORAL
     Route: 048
     Dates: start: 20060311
  3. VELCADE [Suspect]
     Indication: MULTIPLE MYELOMA
     Dosage: 1 MG/M2; 1.6 MG/M2
     Dates: end: 20071112
  4. VELCADE [Suspect]
     Indication: MULTIPLE MYELOMA
     Dosage: 1 MG/M2; 1.6 MG/M2
     Dates: start: 20060308
  5. DEXAMETHASONE TAB [Suspect]
     Indication: MULTIPLE MYELOMA
     Dosage: 40 MG, ORAL; 20 MG/M2 REDUCED DOSE TO 12 MG/M2, DAYS 1-4 EVERY 21 DAYS, ORAL
     Route: 048
     Dates: end: 20071108
  6. DEXAMETHASONE TAB [Suspect]
     Indication: MULTIPLE MYELOMA
     Dosage: 40 MG, ORAL; 20 MG/M2 REDUCED DOSE TO 12 MG/M2, DAYS 1-4 EVERY 21 DAYS, ORAL
     Route: 048
     Dates: start: 20060311
  7. LEVAQUIN [Concomitant]
  8. ACYCLOVIR (ACICLOVIR) (TABLETS) [Concomitant]
  9. PROCRIT [Concomitant]
  10. VIVELLE [Concomitant]
  11. LORAZEPAM [Concomitant]
  12. NEXIUM [Concomitant]
  13. LOVENOX [Concomitant]
  14. FOLIC ACID (FOLIC ACID) (TABLETS) [Concomitant]
  15. CALTRATE PLUS (CALTRATE PLUS) (TABLETS) [Concomitant]
  16. TOPROL XL (METOPROLOL SUCCINATE) (TABLETS) [Concomitant]
  17. AREDIA [Concomitant]

REACTIONS (2)
  - PNEUMONIA [None]
  - SINUSITIS [None]
